FAERS Safety Report 22166520 (Version 1)
Quarter: 2023Q2

REPORT INFORMATION
  Report Type: Spontaneous
  Country: CN (occurrence: CN)
  Receive Date: 20230403
  Receipt Date: 20230403
  Transmission Date: 20230721
  Serious: Yes (Other)
  Sender: FDA-Public Use
  Company Number: CN-PFIZER INC-PV202300060052

PATIENT
  Age: 29 Year
  Sex: Female
  Weight: 76.3 kg

DRUGS (4)
  1. HEMABATE [Suspect]
     Active Substance: CARBOPROST TROMETHAMINE
     Indication: Uterine hypotonus
     Dosage: 250 UG, 1X/DAY
     Route: 015
     Dates: start: 20230325, end: 20230325
  2. OXYTOCIN [Concomitant]
     Active Substance: OXYTOCIN
     Dosage: 200
     Route: 041
     Dates: start: 20230325
  3. RINGER [CALCIUM CHLORIDE DIHYDRATE;MAGNESIUM CHLORIDE;POTASSIUM CHLORI [Concomitant]
     Dosage: 500 ML
     Route: 041
     Dates: start: 20230325
  4. CALCIUM GLUCONATE [Concomitant]
     Active Substance: CALCIUM GLUCONATE
     Dosage: 1 G
     Route: 041
     Dates: start: 20230325

REACTIONS (2)
  - Pruritus [Recovering/Resolving]
  - Off label use [Unknown]

NARRATIVE: CASE EVENT DATE: 20230325
